FAERS Safety Report 6902509-5 (Version None)
Quarter: 2010Q3

REPORT INFORMATION
  Report Type: 
  Country: None (occurrence: None)
  Receive Date: 20100803
  Receipt Date: 20100728
  Transmission Date: 20110219
  Serious: Yes (Death)
  Sender: FDA-Public Use
  Company Number: US-GILEAD-2010-0030695

PATIENT
  Age: 32 Year
  Sex: Female
  Weight: 59.02 kg

DRUGS (8)
  1. LETAIRIS [Suspect]
     Indication: PULMONARY ARTERIAL HYPERTENSION
     Route: 048
     Dates: start: 20100219
  2. PREDNISONE [Concomitant]
  3. SYMBICORT [Concomitant]
  4. NEXIUM [Concomitant]
  5. VITAMIN B6 [Concomitant]
  6. AVELOX [Concomitant]
  7. MYCOPHENOLATE MOFETIL [Concomitant]
  8. ALPRAZOLAM [Concomitant]

REACTIONS (1)
  - INTERSTITIAL LUNG DISEASE [None]
